FAERS Safety Report 23647549 (Version 1)
Quarter: 2024Q1

REPORT INFORMATION
  Report Type: Spontaneous
  Country: US (occurrence: None)
  Receive Date: 20240318
  Receipt Date: 20240318
  Transmission Date: 20240410
  Serious: Yes (Death)
  Sender: FDA-Public Use
  Company Number: None

PATIENT
  Age: 70 Year
  Sex: Female
  Weight: 43.2 kg

DRUGS (1)
  1. TIVOZANIB [Suspect]
     Active Substance: TIVOZANIB
     Indication: Renal cell carcinoma
     Dosage: 1.34 MG : DAYS 1-21 OF 28DC ORAL?
     Route: 048
     Dates: start: 20231215, end: 20240316

REACTIONS (6)
  - Unresponsive to stimuli [None]
  - Pulmonary embolism [None]
  - Adrenocortical insufficiency acute [None]
  - Ischaemic hepatitis [None]
  - Metastatic renal cell carcinoma [None]
  - Cardio-respiratory arrest [None]

NARRATIVE: CASE EVENT DATE: 20240316
